FAERS Safety Report 9334824 (Version 1)
Quarter: 2013Q2

REPORT INFORMATION
  Report Type: Spontaneous
  Country: US (occurrence: US)
  Receive Date: 20130606
  Receipt Date: 20130606
  Transmission Date: 20140414
  Serious: No
  Sender: FDA-Public Use
  Company Number: US-AMGEN-USASP2013025354

PATIENT
  Age: 79 Year
  Sex: Female
  Weight: 65.31 kg

DRUGS (14)
  1. PROLIA [Suspect]
     Indication: OSTEOPOROSIS POSTMENOPAUSAL
     Dosage: 60 MG, Q6MO
     Route: 058
     Dates: start: 20120919
  2. RANTIDINE [Concomitant]
     Dosage: 150 MG, QD
     Route: 048
  3. PRAVACHOL [Concomitant]
     Indication: BLOOD CHOLESTEROL INCREASED
     Dosage: 20 MG, QHS
     Route: 048
  4. NEURONTIN [Concomitant]
     Dosage: 600 MG, QID
     Route: 048
  5. OMEPRAZOLE [Concomitant]
     Dosage: 40 MG, QD
     Route: 048
  6. ASPIRIN [Concomitant]
     Dosage: 81 MG, QD
     Route: 048
  7. LISINOPRIL [Concomitant]
     Dosage: 20 MG, QD
     Route: 048
  8. MULTIPLE VITAMINS [Concomitant]
     Dosage: UNK UNK, QD
  9. CALCITRATE [Concomitant]
     Dosage: 1500 MG, QD
  10. VITAMIN D3 [Concomitant]
     Dosage: 1000 UNIT, QD
  11. CARVEDIOL [Concomitant]
     Dosage: 12.5 MG, BID
     Route: 048
  12. HYDROCODONE W/ACETAMINOPHEN [Concomitant]
     Indication: PAIN
     Dosage: 500 MG, TID
     Route: 048
  13. LIDODERM [Concomitant]
     Dosage: 5 %, QD, 12 HRS ON AND 12 HR OFF
  14. AUGMENTIN                          /00756801/ [Concomitant]
     Dosage: 125 MG, EVERY 12 HRS FOR 10 DAYS
     Route: 048

REACTIONS (1)
  - Arthralgia [Recovered/Resolved]
